FAERS Safety Report 7148764-0 (Version None)
Quarter: 2010Q4

REPORT INFORMATION
  Report Type: 
  Country: None (occurrence: None)
  Receive Date: 20101209
  Receipt Date: 20101203
  Transmission Date: 20110411
  Serious: Yes (Other)
  Sender: FDA-Public Use
  Company Number: JP-ACTELION-A-CH2010-38716

PATIENT
  Sex: Male

DRUGS (8)
  1. BOSENTAN TABLET 62.5 MG JPN [Suspect]
     Indication: PULMONARY HYPERTENSION
     Dosage: 62.5 MG, BID
     Route: 048
     Dates: start: 20100610, end: 20100729
  2. BOSENTAN TABLET 62.5 MG JPN [Suspect]
     Dosage: 31.25 MG, BID
     Route: 048
     Dates: start: 20100511, end: 20100609
  3. BERAPROST SODIUM [Concomitant]
  4. WARFARIN POTASSIUM [Concomitant]
  5. FUROSEMIDE [Concomitant]
  6. METILDIGOXIN [Concomitant]
  7. LEVOTHYROXINE SODIUM [Concomitant]
  8. OXYGEN [Concomitant]

REACTIONS (3)
  - ALANINE AMINOTRANSFERASE INCREASED [None]
  - ASPARTATE AMINOTRANSFERASE INCREASED [None]
  - HEPATIC FUNCTION ABNORMAL [None]
